FAERS Safety Report 19855774 (Version 1)
Quarter: 2021Q3

REPORT INFORMATION
  Report Type: Spontaneous
  Country: GB (occurrence: GB)
  Receive Date: 20210920
  Receipt Date: 20210920
  Transmission Date: 20211014
  Serious: Yes (Other)
  Sender: FDA-Public Use
  Company Number: GB-SUN PHARMACEUTICAL INDUSTRIES LTD-2021R1-311107

PATIENT
  Age: 33 Year
  Sex: Male

DRUGS (10)
  1. COCODAMOL [Concomitant]
     Active Substance: ACETAMINOPHEN\CODEINE PHOSPHATE
     Indication: PRODUCT USED FOR UNKNOWN INDICATION
     Dosage: 30/500 MG FOUR TIMES A DAY
     Route: 065
  2. PARACETAMOL [Concomitant]
     Active Substance: ACETAMINOPHEN
     Indication: INFLAMMATION
     Dosage: 1 GRAM, FOUR TIMES A DAY
     Route: 042
  3. METOCLOPRAMIDE. [Concomitant]
     Active Substance: METOCLOPRAMIDE
     Indication: PRODUCT USED FOR UNKNOWN INDICATION
     Dosage: 10 MILLIGRAM, TID
     Route: 048
  4. CYCLIZINE [Concomitant]
     Active Substance: CYCLIZINE
     Indication: INFLAMMATION
     Dosage: 150 MILLIGRAM/24 HRS
     Route: 058
  5. OXYCODONE [Suspect]
     Active Substance: OXYCODONE
     Dosage: 140 MILLIGRAM
     Route: 058
  6. OXYCODONE [Suspect]
     Active Substance: OXYCODONE
     Indication: PAIN
     Dosage: 120 MILLIGRAM, BID
     Route: 048
  7. OXYCODONE [Suspect]
     Active Substance: OXYCODONE
     Dosage: 40 MILLIGRAM, 4 AND 6 TIMES DAILY
     Route: 048
  8. DEXAMETHASONE. [Concomitant]
     Active Substance: DEXAMETHASONE
     Indication: INFLAMMATION
     Dosage: 2 MILLIGRAM, QD
     Route: 065
  9. DEXAMETHASONE. [Concomitant]
     Active Substance: DEXAMETHASONE
     Dosage: 8 MILLIGRAM, QD
     Route: 042
  10. CLONAZEPAM. [Concomitant]
     Active Substance: CLONAZEPAM
     Indication: PRODUCT USED FOR UNKNOWN INDICATION
     Dosage: 1 MILLIGRAM NOCTE
     Route: 065

REACTIONS (1)
  - Hyperaesthesia [Recovering/Resolving]
